FAERS Safety Report 7332927-5 (Version None)
Quarter: 2011Q1

REPORT INFORMATION
  Report Type: 
  Country: None (occurrence: None)
  Receive Date: 20110304
  Receipt Date: 20110228
  Transmission Date: 20110831
  Serious: Yes (Other)
  Sender: FDA-Public Use
  Company Number: CHPA2011US03386

PATIENT
  Age: 13 Year
  Sex: Female

DRUGS (1)
  1. MAALOX ANTACID/ANTIGAS RS LIQ COOL MINT [Suspect]
     Indication: DYSPEPSIA
     Dosage: LESS THAN 2 TSP, ONCE
     Route: 048
     Dates: start: 20110228, end: 20110228

REACTIONS (7)
  - SYNCOPE [None]
  - FEELING HOT [None]
  - TREMOR [None]
  - SENSATION OF HEAVINESS [None]
  - FEELING ABNORMAL [None]
  - EMOTIONAL DISTRESS [None]
  - NERVOUSNESS [None]
